FAERS Safety Report 9107212 (Version 1)
Quarter: 2013Q1

REPORT INFORMATION
  Report Type: Spontaneous
  Country: DK (occurrence: DK)
  Receive Date: 20130221
  Receipt Date: 20130221
  Transmission Date: 20140127
  Serious: Yes (Other)
  Sender: FDA-Public Use
  Company Number: DK-JNJFOC-20130207873

PATIENT
  Age: 48 Year
  Sex: Female
  Weight: 58 kg

DRUGS (5)
  1. REMICADE [Suspect]
     Indication: RHEUMATOID ARTHRITIS
     Dosage: 0, 2, 6,  8
     Route: 042
     Dates: start: 20080730, end: 20121001
  2. EMTHEXATE /00113801/ [Suspect]
     Indication: RHEUMATOID ARTHRITIS
     Route: 065
     Dates: start: 20100315, end: 20121001
  3. EMTHEXATE /00113801/ [Suspect]
     Indication: RHEUMATOID ARTHRITIS
     Route: 065
     Dates: start: 20080730, end: 20091002
  4. EMTHEXATE /00113801/ [Suspect]
     Indication: RHEUMATOID ARTHRITIS
     Route: 065
     Dates: start: 20121001
  5. PREDNISOLON [Concomitant]
     Route: 065
     Dates: start: 20081103, end: 20090605

REACTIONS (1)
  - Hodgkin^s disease [Not Recovered/Not Resolved]
